FAERS Safety Report 17531993 (Version 1)
Quarter: 2020Q1

REPORT INFORMATION
  Report Type: Spontaneous
  Country: PL (occurrence: PL)
  Receive Date: 20200312
  Receipt Date: 20200312
  Transmission Date: 20200409
  Serious: Yes (Life-Threatening)
  Sender: FDA-Public Use
  Company Number: PL-MYLANLABS-2020M1028194

PATIENT
  Age: 83 Year
  Sex: Male
  Weight: 82 kg

DRUGS (1)
  1. OMEPRAZOLE. [Suspect]
     Active Substance: OMEPRAZOLE
     Indication: PEPTIC ULCER
     Dosage: 40 MG + 100ML 0.9% NACL
     Route: 042
     Dates: start: 20190516, end: 20190516

REACTIONS (4)
  - Anxiety [Recovered/Resolved]
  - Seizure [Recovered/Resolved]
  - Altered state of consciousness [Recovered/Resolved]
  - Pyrexia [Recovered/Resolved]

NARRATIVE: CASE EVENT DATE: 20190516
